FAERS Safety Report 10101070 (Version 1)
Quarter: 2014Q2

REPORT INFORMATION
  Report Type: Spontaneous
  Country: US (occurrence: US)
  Receive Date: 20140424
  Receipt Date: 20140424
  Transmission Date: 20141212
  Serious: No
  Sender: FDA-Public Use
  Company Number: US-BIOGENIDEC-2014BI015994

PATIENT
  Sex: Female

DRUGS (1)
  1. AVONEX [Suspect]
     Indication: MULTIPLE SCLEROSIS
     Route: 030
     Dates: start: 20110217

REACTIONS (19)
  - Memory impairment [Not Recovered/Not Resolved]
  - Central nervous system lesion [Not Recovered/Not Resolved]
  - Dental caries [Not Recovered/Not Resolved]
  - Adverse event [Not Recovered/Not Resolved]
  - Drug administered at inappropriate site [Unknown]
  - Multiple sclerosis [Unknown]
  - Diabetes mellitus [Not Recovered/Not Resolved]
  - Scar [Not Recovered/Not Resolved]
  - Skin ulcer [Recovered/Resolved]
  - Depression [Recovered/Resolved with Sequelae]
  - Muscular weakness [Not Recovered/Not Resolved]
  - Pain in extremity [Recovered/Resolved]
  - Pruritus [Recovered/Resolved]
  - Feeling abnormal [Recovered/Resolved]
  - Feeling hot [Recovered/Resolved]
  - Insomnia [Not Recovered/Not Resolved]
  - Pain [Not Recovered/Not Resolved]
  - Influenza like illness [Recovered/Resolved with Sequelae]
  - Arthralgia [Not Recovered/Not Resolved]
